FAERS Safety Report 23995616 (Version 2)
Quarter: 2024Q2

REPORT INFORMATION
  Report Type: Spontaneous
  Country: JP (occurrence: JP)
  Receive Date: 20240620
  Receipt Date: 20240629
  Transmission Date: 20240716
  Serious: Yes (Other)
  Sender: FDA-Public Use
  Company Number: JP-UCBSA-2024030612

PATIENT
  Sex: Female

DRUGS (10)
  1. LEVETIRACETAM [Suspect]
     Active Substance: LEVETIRACETAM
     Indication: Benign rolandic epilepsy
     Dosage: UNK
     Route: 048
  2. CARBAMAZEPINE [Concomitant]
     Active Substance: CARBAMAZEPINE
     Indication: Benign rolandic epilepsy
     Dosage: UNK
  3. VALPROATE SODIUM [Concomitant]
     Active Substance: VALPROATE SODIUM
     Indication: Benign rolandic epilepsy
     Dosage: UNK
  4. ETHOSUXIMIDE [Concomitant]
     Active Substance: ETHOSUXIMIDE
     Indication: Benign rolandic epilepsy
     Dosage: UNK
  5. CLOBAZAM [Concomitant]
     Active Substance: CLOBAZAM
     Indication: Benign rolandic epilepsy
     Dosage: UNK
  6. CLONAZEPAM [Concomitant]
     Active Substance: CLONAZEPAM
     Indication: Benign rolandic epilepsy
     Dosage: UNK
  7. SULTHIAME [Concomitant]
     Active Substance: SULTHIAME
     Indication: Benign rolandic epilepsy
     Dosage: UNK
  8. NITRAZEPAM [Concomitant]
     Active Substance: NITRAZEPAM
     Indication: Benign rolandic epilepsy
     Dosage: UNK
  9. PHENYTOIN [Concomitant]
     Active Substance: PHENYTOIN
     Indication: Benign rolandic epilepsy
     Dosage: UNK
  10. METHYLPREDNISOLONE [Concomitant]
     Active Substance: METHYLPREDNISOLONE
     Indication: Benign rolandic epilepsy
     Dosage: UNK

REACTIONS (2)
  - Epilepsy [Recovered/Resolved]
  - Intellectual disability [Unknown]
